FAERS Safety Report 8901058 (Version 1)
Quarter: 2012Q4

REPORT INFORMATION
  Report Type: 
  Country: GR (occurrence: GR)
  Receive Date: 20121109
  Receipt Date: 20121109
  Transmission Date: 20130627
  Serious: Yes (Hospitalization)
  Sender: FDA-Public Use
  Company Number: GR-US-EMD SERONO, INC.-7172645

PATIENT
  Age: 44 Year
  Sex: Female

DRUGS (8)
  1. REBIF [Suspect]
     Indication: MULTIPLE SCLEROSIS
     Route: 058
     Dates: start: 201201, end: 20121003
  2. REBIF [Suspect]
     Route: 058
     Dates: start: 20121101
  3. KEPPRA [Concomitant]
     Indication: EPILEPSY
     Route: 048
  4. CYMBALTA [Concomitant]
     Indication: EPILEPSY
     Route: 048
  5. XANAX [Concomitant]
     Indication: EPILEPSY
     Route: 048
  6. CIRCADIN [Concomitant]
     Indication: EPILEPSY
     Route: 048
  7. FENOBRAT [Concomitant]
     Indication: PRODUCT USED FOR UNKNOWN INDICATION
     Route: 048
  8. OMACOR [Concomitant]
     Indication: PRODUCT USED FOR UNKNOWN INDICATION
     Route: 048

REACTIONS (1)
  - Headache [Recovering/Resolving]
